FAERS Safety Report 6754900-8 (Version None)
Quarter: 2010Q2

REPORT INFORMATION
  Report Type: 
  Country: None (occurrence: None)
  Receive Date: 20100524
  Receipt Date: 20100309
  Transmission Date: 20101027
  Serious: No
  Sender: FDA-Public Use
  Company Number: 008600

PATIENT
  Sex: Female

DRUGS (1)
  1. CIMZIA [Suspect]
     Indication: CROHN'S DISEASE
     Dosage: 400MG SUBCUTANEOUS
     Route: 058
     Dates: start: 20091116

REACTIONS (4)
  - FATIGUE [None]
  - HAEMATOCHEZIA [None]
  - INCORRECT ROUTE OF DRUG ADMINISTRATION [None]
  - WEIGHT DECREASED [None]
